FAERS Safety Report 4889292-2 (Version None)
Quarter: 2006Q1

REPORT INFORMATION
  Report Type: 
  Country: None (occurrence: None)
  Receive Date: 20060120
  Receipt Date: 20060120
  Transmission Date: 20060701
  Serious: Yes (Hospitalization, Other)
  Sender: FDA-Public Use
  Company Number: None

PATIENT
  Age: 44 Year
  Sex: Male
  Weight: 75.7507 kg

DRUGS (2)
  1. DIPRIVAN [Suspect]
     Indication: LIFE SUPPORT
     Dosage: VARIABLE INFUSION IV
     Route: 042
     Dates: start: 20060104, end: 20060119
  2. DIPRIVAN [Suspect]
     Indication: SEDATION
     Dosage: VARIABLE INFUSION IV
     Route: 042
     Dates: start: 20060104, end: 20060119

REACTIONS (3)
  - CARDIAC DISORDER [None]
  - METABOLIC ACIDOSIS [None]
  - RHABDOMYOLYSIS [None]
